FAERS Safety Report 5251494-3 (Version None)
Quarter: 2007Q1

REPORT INFORMATION
  Report Type: 
  Country: None (occurrence: None)
  Receive Date: 20070228
  Receipt Date: 20060519
  Transmission Date: 20070707
  Serious: No
  Sender: FDA-Public Use
  Company Number: US-GLAXOSMITHKLINE-A0606055A

PATIENT
  Age: 53 Year
  Sex: Female

DRUGS (4)
  1. LAMICTAL [Suspect]
     Indication: BIPOLAR DISORDER
     Dosage: 25MG PER DAY
     Route: 048
     Dates: start: 20060424
  2. CELEXA [Concomitant]
  3. SEROQUEL [Concomitant]
  4. LUNESTA [Concomitant]

REACTIONS (1)
  - DRUG INEFFECTIVE [None]
